FAERS Safety Report 18013215 (Version 2)
Quarter: 2020Q3

REPORT INFORMATION
  Report Type: Spontaneous
  Country: US (occurrence: US)
  Receive Date: 20200713
  Receipt Date: 20200715
  Transmission Date: 20201103
  Serious: Yes (Hospitalization, Other)
  Sender: FDA-Public Use
  Company Number: US-PFIZER INC-2020263419

PATIENT
  Age: 73 Year
  Sex: Female

DRUGS (3)
  1. IBRANCE [Suspect]
     Active Substance: PALBOCICLIB
     Indication: BREAST CANCER FEMALE
     Dosage: 75 MG, CYCLIC (75MG CAPSULES BY MOUTH ONCE DAILY FOR 21 DAYS FOLLOWED BY 7 DAYS OFF )
     Route: 048
     Dates: start: 20200121
  2. FASLODEX [Concomitant]
     Active Substance: FULVESTRANT
     Dosage: UNK
     Dates: start: 20200116
  3. DEXAMETHASONE. [Concomitant]
     Active Substance: DEXAMETHASONE
     Dosage: UNK
     Dates: start: 20200116

REACTIONS (1)
  - Soft tissue infection [Recovering/Resolving]

NARRATIVE: CASE EVENT DATE: 20200703
